FAERS Safety Report 5859977-X (Version None)
Quarter: 2008Q3

REPORT INFORMATION
  Report Type: 
  Country: None (occurrence: None)
  Receive Date: 20080827
  Receipt Date: 20080818
  Transmission Date: 20090109
  Serious: Yes (Hospitalization)
  Sender: FDA-Public Use
  Company Number: GB-ELI_LILLY_AND_COMPANY-GB200808003190

PATIENT
  Sex: Male

DRUGS (5)
  1. BYETTA [Suspect]
     Indication: TYPE 2 DIABETES MELLITUS
     Dosage: 5 UG, UNKNOWN
     Route: 065
     Dates: start: 20080101, end: 20080101
  2. BYETTA [Suspect]
     Dosage: 10 UG, 2/D
     Route: 065
     Dates: start: 20080601
  3. LANTUS [Concomitant]
     Indication: TYPE 2 DIABETES MELLITUS
     Dosage: 70 D/F, UNKNOWN
     Route: 065
     Dates: start: 20050101
  4. RISPERIDONE [Concomitant]
     Indication: BIPOLAR I DISORDER
     Dosage: UNK, UNKNOWN
     Route: 065
  5. LITHIUM CARBONATE [Concomitant]
     Indication: BIPOLAR I DISORDER
     Dosage: UNK, UNKNOWN
     Route: 065

REACTIONS (7)
  - BLOOD GLUCOSE INCREASED [None]
  - FATIGUE [None]
  - HUNGER [None]
  - HYPERHIDROSIS [None]
  - HYPOGLYCAEMIA [None]
  - TREMOR [None]
  - WEIGHT DECREASED [None]
